FAERS Safety Report 17020616 (Version 1)
Quarter: 2019Q4

REPORT INFORMATION
  Report Type: Report from Study
  Country: BE (occurrence: BE)
  Receive Date: 20191112
  Receipt Date: 20191112
  Transmission Date: 20200122
  Serious: Yes (Hospitalization)
  Sender: FDA-Public Use
  Company Number: BE-ROCHE-2314646

PATIENT
  Age: 59 Year
  Sex: Male

DRUGS (1)
  1. OCRELIZUMAB. [Suspect]
     Active Substance: OCRELIZUMAB
     Indication: PRIMARY PROGRESSIVE MULTIPLE SCLEROSIS
     Route: 065
     Dates: start: 20180322

REACTIONS (1)
  - Peau d^orange [Recovering/Resolving]

NARRATIVE: CASE EVENT DATE: 20190330
